FAERS Safety Report 6927785-4 (Version None)
Quarter: 2010Q3

REPORT INFORMATION
  Report Type: 
  Country: None (occurrence: None)
  Receive Date: 20100817
  Receipt Date: 20100804
  Transmission Date: 20110219
  Serious: Yes (Hospitalization)
  Sender: FDA-Public Use
  Company Number: US-ASTRAZENECA-2010SE38072

PATIENT
  Age: 58 Year
  Sex: Male
  Weight: 86.2 kg

DRUGS (11)
  1. ATENOLOL [Suspect]
     Indication: HYPERTENSION
     Route: 048
     Dates: start: 20100625, end: 20100628
  2. PF-04383119;PLACEBO;CELECOXIB;NAPROXEN (CODE NOT BROKEN) [Suspect]
     Indication: OSTEOARTHRITIS
     Dates: start: 20091116, end: 20100624
  3. METFORMIN [Concomitant]
     Indication: DIABETES MELLITUS
     Route: 048
     Dates: start: 20000101, end: 20100702
  4. SIMVASTATIN [Concomitant]
     Indication: DYSLIPIDAEMIA
     Route: 048
     Dates: start: 19960101
  5. OMEPRAZOLE [Concomitant]
     Indication: GASTROOESOPHAGEAL REFLUX DISEASE
     Dates: start: 20020101
  6. GLIPIZIDE [Concomitant]
     Indication: DIABETES MELLITUS
     Route: 048
     Dates: start: 20000101
  7. ADVAIR DISKUS 100/50 [Concomitant]
     Indication: ASTHMA
     Dosage: 500 MCG , TWO TIMES DAILY
     Route: 055
     Dates: start: 20060101
  8. ACETYLSALICYLIC ACID SRT [Concomitant]
     Indication: CARDIOVASCULAR EVENT PROPHYLAXIS
     Route: 048
     Dates: start: 20000101
  9. LORATADINE [Concomitant]
     Indication: MULTIPLE ALLERGIES
     Route: 048
     Dates: start: 20090101
  10. PROAIR HFA [Concomitant]
     Indication: ASTHMA
     Route: 055
     Dates: start: 20050101
  11. LISINOPRIL AND HYDROCHLOROTHIAZIDE [Concomitant]
     Indication: HYPERTENSION
     Dosage: LISINOPRIL 20MG / HCT 25 MG, ONCE DAILY
     Route: 048
     Dates: start: 20100412

REACTIONS (1)
  - ASTHMA [None]
